FAERS Safety Report 4650810-0 (Version None)
Quarter: 2005Q2

REPORT INFORMATION
  Report Type: 
  Country: None (occurrence: None)
  Receive Date: 20050503
  Receipt Date: 20050422
  Transmission Date: 20051028
  Serious: Yes (Hospitalization)
  Sender: FDA-Public Use
  Company Number: 251103-13

PATIENT
  Age: 77 Year
  Sex: Female

DRUGS (7)
  1. QUILONORM [Suspect]
     Route: 048
     Dates: start: 20030428, end: 20030508
  2. CALCIMAGON [Concomitant]
  3. EFFEXOR [Concomitant]
     Indication: DEPRESSION
  4. REMERON [Concomitant]
     Indication: DEPRESSION
  5. RENITEN [Concomitant]
  6. TENORMIN [Concomitant]
  7. ZYPREXA [Concomitant]
     Indication: DEPRESSION

REACTIONS (5)
  - APATHY [None]
  - ASTHENIA [None]
  - MUSCLE TWITCHING [None]
  - POISONING [None]
  - SPEECH DISORDER [None]
